FAERS Safety Report 8986389 (Version 1)
Quarter: 2012Q4

REPORT INFORMATION
  Report Type: 
  Country: US (occurrence: US)
  Receive Date: 20121227
  Receipt Date: 20121227
  Transmission Date: 20130627
  Serious: Yes (Other)
  Sender: FDA-Public Use
  Company Number: US-CELGENEUS-163-20785-12121518

PATIENT
  Sex: Male

DRUGS (2)
  1. THALOMID [Suspect]
     Indication: MULTIPLE MYELOMA
     Dosage: 100 Milligram
     Route: 048
     Dates: start: 201106
  2. THALOMID [Suspect]
     Dosage: 200 Milligram
     Route: 048
     Dates: start: 201111

REACTIONS (1)
  - Cardiac disorder [Unknown]
